FAERS Safety Report 9798964 (Version 1)
Quarter: 2014Q1

REPORT INFORMATION
  Report Type: Spontaneous
  Country: MX (occurrence: MX)
  Receive Date: 20140106
  Receipt Date: 20140106
  Transmission Date: 20141002
  Serious: Yes (Other)
  Sender: FDA-Public Use
  Company Number: PHHY2014MX000658

PATIENT
  Age: 69 Year
  Sex: Female

DRUGS (4)
  1. ACLASTA [Suspect]
     Indication: OSTEOPOROSIS
     Dosage: 5 MG PER 100 ML, ANNUALLY
     Route: 042
     Dates: start: 201211
  2. LANTUS [Concomitant]
     Dosage: 40 UKN
     Dates: start: 2008
  3. INSOGEN PLUS [Concomitant]
     Indication: DIABETES MELLITUS
     Dosage: 3 UKN, DAILY
     Dates: start: 2012
  4. PRE-DIAL [Concomitant]
     Dosage: 0.5 UKN, DAILY
     Dates: start: 2003

REACTIONS (4)
  - Bronchitis [Recovered/Resolved]
  - Bronchial disorder [Recovered/Resolved]
  - Visual acuity reduced [Not Recovered/Not Resolved]
  - Influenza [Recovered/Resolved]
